FAERS Safety Report 12903280 (Version 1)
Quarter: 2016Q4

REPORT INFORMATION
  Report Type: Spontaneous
  Country: FR (occurrence: FR)
  Receive Date: 20161102
  Receipt Date: 20161102
  Transmission Date: 20170207
  Serious: Yes (Other)
  Sender: FDA-Public Use
  Company Number: FR-009507513-1610FRA014587

PATIENT
  Age: 62 Year
  Sex: Male

DRUGS (11)
  1. EZETROL [Suspect]
     Active Substance: EZETIMIBE
     Indication: DYSLIPIDAEMIA
     Dosage: 1 DF PER DAY
     Route: 048
     Dates: start: 20160722, end: 20160809
  2. THIAMINE. [Concomitant]
     Active Substance: THIAMINE
  3. LASILIX [Concomitant]
     Active Substance: FUROSEMIDE
  4. JOSIR [Concomitant]
     Active Substance: TAMSULOSIN
  5. KAYEXALATE [Concomitant]
     Active Substance: SODIUM POLYSTYRENE SULFONATE
  6. KARDEGIC [Concomitant]
     Active Substance: ASPIRIN LYSINE
  7. TANAKAN [Concomitant]
     Active Substance: GINKGO
  8. LYRICA [Concomitant]
     Active Substance: PREGABALIN
  9. PYRIDOXINE [Concomitant]
     Active Substance: PYRIDOXINE
  10. HUMALOG [Concomitant]
     Active Substance: INSULIN LISPRO
  11. CACIT [Concomitant]
     Active Substance: CALCIUM\VITAMIN D

REACTIONS (1)
  - Mixed liver injury [Recovering/Resolving]
